FAERS Safety Report 7208865-5 (Version None)
Quarter: 2010Q4

REPORT INFORMATION
  Report Type: 
  Country: None (occurrence: None)
  Receive Date: 20101222
  Receipt Date: 20101206
  Transmission Date: 20110411
  Serious: Yes (Hospitalization)
  Sender: FDA-Public Use
  Company Number: WAES 1012USA02004

PATIENT
  Age: 6 Year
  Sex: Male
  Weight: 25.855 kg

DRUGS (2)
  1. DECADRON [Suspect]
     Dates: start: 20100923, end: 20101125
  2. VORINOSTAT [Concomitant]

REACTIONS (6)
  - CYSTITIS [None]
  - INTERSTITIAL LUNG DISEASE [None]
  - PNEUMONIA MYCOPLASMAL [None]
  - PNEUMONIA VIRAL [None]
  - PSEUDOMONAS TEST POSITIVE [None]
  - SINUSITIS [None]
